FAERS Safety Report 16126521 (Version 1)
Quarter: 2019Q1

REPORT INFORMATION
  Report Type: Spontaneous
  Country: IT (occurrence: IT)
  Receive Date: 20190328
  Receipt Date: 20190328
  Transmission Date: 20190418
  Serious: Yes (Hospitalization)
  Sender: FDA-Public Use
  Company Number: IT-SA-2019SA079746

PATIENT
  Age: 68 Year
  Sex: Female
  Weight: 92 kg

DRUGS (13)
  1. CLEXANE T [Concomitant]
     Active Substance: ENOXAPARIN SODIUM
     Dosage: 1 DF, UNK
     Route: 048
     Dates: start: 20190101
  2. EUTIROX [Concomitant]
     Active Substance: LEVOTHYROXINE SODIUM
     Indication: HYPOTHYROIDISM
     Dosage: 1 DF, UNK
     Route: 048
     Dates: start: 20190101
  3. TARGIN [Concomitant]
     Active Substance: NALOXONE HYDROCHLORIDE\OXYCODONE HYDROCHLORIDE
     Indication: PAIN
     Dosage: 2 DF, UNK (STRENGTH 10 MG/5MG)
     Route: 048
     Dates: start: 20190101
  4. DELTACORTENE [Concomitant]
     Active Substance: PREDNISONE
     Dosage: 2 DF, UNK
     Route: 048
     Dates: start: 20190101
  5. DOCETAXEL. [Suspect]
     Active Substance: DOCETAXEL
     Indication: BREAST CANCER RECURRENT
     Dosage: 70 MG, QCY
     Route: 042
     Dates: start: 20190214, end: 20190214
  6. EUTIROX [Concomitant]
     Active Substance: LEVOTHYROXINE SODIUM
     Indication: HYPOTHYROIDISM
     Dosage: 1 DF, UNK
     Route: 048
     Dates: start: 20190101
  7. PARACETAMOL [Concomitant]
     Active Substance: ACETAMINOPHEN
     Indication: PAIN
     Dosage: 2000 MG, UNK
     Route: 048
     Dates: start: 20190101
  8. CONCOR [Concomitant]
     Active Substance: BISOPROLOL FUMARATE
     Indication: HYPERTENSION
     Dosage: 1 DF, UNK
     Route: 048
     Dates: start: 20190101
  9. ALLOPURINOL. [Concomitant]
     Active Substance: ALLOPURINOL
     Dosage: 100 MG, UNK
     Route: 048
     Dates: start: 20190101
  10. DOCETAXEL. [Suspect]
     Active Substance: DOCETAXEL
     Dosage: 70 MG, QCY
     Route: 042
     Dates: start: 20190228, end: 20190228
  11. LASITONE [Concomitant]
     Active Substance: FUROSEMIDE\SPIRONOLACTONE
     Dosage: 1 DF, UNK (STRENGTH 25 MG + 37 MG)
     Route: 048
     Dates: start: 20190101
  12. CARDIOASPIRIN [Concomitant]
     Active Substance: ASPIRIN
     Dosage: 1 DF, UNK
     Route: 048
     Dates: start: 20190101
  13. IPERTEN [Concomitant]
     Active Substance: MANIDIPINE
     Indication: HYPERTENSION
     Dosage: 10 MG, UNK
     Route: 048
     Dates: start: 20190101

REACTIONS (2)
  - Atrial fibrillation [Recovered/Resolved]
  - Dyspnoea [Recovered/Resolved]

NARRATIVE: CASE EVENT DATE: 20190228
